FAERS Safety Report 22660312 (Version 1)
Quarter: 2023Q2

REPORT INFORMATION
  Report Type: Spontaneous
  Country: GB (occurrence: GB)
  Receive Date: 20230630
  Receipt Date: 20230630
  Transmission Date: 20230721
  Serious: Yes (Other)
  Sender: FDA-Public Use
  Company Number: GB-FreseniusKabi-FK202309669

PATIENT
  Age: 35 Year
  Sex: Female

DRUGS (6)
  1. AMIKACIN [Suspect]
     Active Substance: AMIKACIN
     Indication: Mycobacterium abscessus infection
     Dosage: 20MG/KG 3 TIMES PER WEEK
     Route: 042
  2. AZITHROMYCIN [Suspect]
     Active Substance: AZITHROMYCIN
     Route: 048
  3. CLOFAZIMINE [Suspect]
     Active Substance: CLOFAZIMINE
     Route: 048
  4. RIFABUTIN [Suspect]
     Active Substance: RIFABUTIN
     Route: 048
  5. cilastatin/imipenem/relebactam [Concomitant]
     Dosage: 500MG / 500MG / 250MG TWICE DAILY
     Route: 048
  6. IMIPENEM AND CILASTATIN [Concomitant]
     Active Substance: CILASTATIN SODIUM\IMIPENEM
     Dosage: 500MG / 500MG TWICE DAILY

REACTIONS (3)
  - Paradoxical drug reaction [Recovered/Resolved]
  - Purulence [Recovered/Resolved]
  - Ototoxicity [Unknown]
